FAERS Safety Report 4422363-3 (Version None)
Quarter: 2004Q3

REPORT INFORMATION
  Report Type: 
  Country: None (occurrence: None)
  Receive Date: 20040810
  Receipt Date: 20040727
  Transmission Date: 20050211
  Serious: Yes (Death)
  Sender: FDA-Public Use
  Company Number: PHRM2004FR02432

PATIENT
  Age: 65 Year
  Sex: Male
  Weight: 95 kg

DRUGS (3)
  1. ZOMETA [Suspect]
     Indication: METASTASES TO BONE
     Dosage: 4 MG, QMO
     Route: 042
     Dates: start: 20040419
  2. KETOPROFEN [Concomitant]
  3. NOVANTRONE ^LEDERLE^ [Suspect]
     Indication: PROSTATE CANCER METASTATIC
     Dates: start: 20040601

REACTIONS (23)
  - ABDOMINAL PAIN [None]
  - ANAEMIA [None]
  - ANURIA [None]
  - APLASIA [None]
  - BILIRUBIN CONJUGATED INCREASED [None]
  - BLOOD ALKALINE PHOSPHATASE INCREASED [None]
  - BLOOD BILIRUBIN INCREASED [None]
  - BLOOD CALCIUM DECREASED [None]
  - BLOOD CHLORIDE DECREASED [None]
  - BLOOD CREATININE INCREASED [None]
  - BLOOD UREA INCREASED [None]
  - C-REACTIVE PROTEIN INCREASED [None]
  - CHOLESTASIS [None]
  - GAMMA-GLUTAMYLTRANSFERASE INCREASED [None]
  - HEPATIC ENZYME INCREASED [None]
  - HYPERGLYCAEMIA [None]
  - HYPERKALAEMIA [None]
  - HYPERTHERMIA [None]
  - HYPONATRAEMIA [None]
  - IRON BINDING CAPACITY TOTAL DECREASED [None]
  - JAUNDICE [None]
  - PANCYTOPENIA [None]
  - RENAL FAILURE ACUTE [None]
